FAERS Safety Report 17756075 (Version 6)
Quarter: 2021Q1

REPORT INFORMATION
  Report Type: Report from Study
  Country: GB (occurrence: GB)
  Receive Date: 20200507
  Receipt Date: 20210329
  Transmission Date: 20210419
  Serious: Yes (Hospitalization, Other)
  Sender: FDA-Public Use
  Company Number: NVSC2020GB123489

PATIENT
  Sex: Male

DRUGS (1)
  1. HYRIMOZ [Suspect]
     Active Substance: ADALIMUMAB-ADAZ
     Indication: ANKYLOSING SPONDYLITIS
     Dosage: 40 MG (FORTNIGHTLY)
     Route: 058
     Dates: start: 20190923

REACTIONS (9)
  - Immunodeficiency [Unknown]
  - Weight decreased [Unknown]
  - Infection [Unknown]
  - Illness [Unknown]
  - Product packaging issue [Unknown]
  - Weight gain poor [Unknown]
  - Product dose omission issue [Unknown]
  - Feeling abnormal [Unknown]
  - Pain [Unknown]
